FAERS Safety Report 4947601-X (Version None)
Quarter: 2006Q1

REPORT INFORMATION
  Report Type: 
  Country: None (occurrence: None)
  Receive Date: 20060314
  Receipt Date: 20060301
  Transmission Date: 20060701
  Serious: Yes (Hospitalization)
  Sender: FDA-Public Use
  Company Number: 2006031143

PATIENT
  Age: 72 Year
  Sex: Female

DRUGS (1)
  1. UNASYN [Suspect]
     Indication: PROPHYLAXIS
     Dosage: (ONCE) INTRAVENOUS
     Route: 042
     Dates: start: 20060224

REACTIONS (3)
  - GENERALISED ERYTHEMA [None]
  - HYPERPYREXIA [None]
  - THERAPY NON-RESPONDER [None]
